FAERS Safety Report 25145520 (Version 1)
Quarter: 2025Q2

REPORT INFORMATION
  Report Type: Spontaneous
  Country: US (occurrence: US)
  Receive Date: 20250401
  Receipt Date: 20250401
  Transmission Date: 20250716
  Serious: Yes (Death, Life-Threatening, Other)
  Sender: PFIZER
  Company Number: US-PFIZER INC-202500066195

PATIENT
  Age: 45 Year
  Sex: Male

DRUGS (2)
  1. KETAMINE HYDROCHLORIDE [Suspect]
     Active Substance: KETAMINE HYDROCHLORIDE
  2. MIDOMAFETAMINE [Suspect]
     Active Substance: MIDOMAFETAMINE

REACTIONS (3)
  - Completed suicide [Fatal]
  - Poisoning [Unknown]
  - Abnormal behaviour [Unknown]
